FAERS Safety Report 25905267 (Version 1)
Quarter: 2025Q4

REPORT INFORMATION
  Report Type: Spontaneous
  Country: KE (occurrence: KE)
  Receive Date: 20251010
  Receipt Date: 20251010
  Transmission Date: 20260117
  Serious: Yes (Life-Threatening, Hospitalization, Other)
  Sender: DAIICHI
  Company Number: KE-AstraZeneca-CH-00966460A

PATIENT

DRUGS (1)
  1. TRASTUZUMAB DERUXTECAN [Suspect]
     Active Substance: TRASTUZUMAB DERUXTECAN
     Indication: Rectal cancer
     Dosage: 5.4 MILLIGRAM/KILOGRAM, Q3W
     Route: 065

REACTIONS (3)
  - Dyspnoea [Not Recovered/Not Resolved]
  - Malignant neoplasm progression [Unknown]
  - Pneumonia [Unknown]

NARRATIVE: CASE EVENT DATE: 20251007
